FAERS Safety Report 8201124-3 (Version None)
Quarter: 2012Q1

REPORT INFORMATION
  Report Type: 
  Country: None (occurrence: None)
  Receive Date: 20120312
  Receipt Date: 20120229
  Transmission Date: 20120608
  Serious: No
  Sender: FDA-Public Use
  Company Number: US-JNJFOC-20120301669

PATIENT
  Sex: Female
  Weight: 56.7 kg

DRUGS (7)
  1. FENTANYL [Suspect]
     Indication: ARTHRALGIA
     Route: 062
     Dates: start: 20111001, end: 20120101
  2. CYMBALTA [Suspect]
     Indication: PRODUCT USED FOR UNKNOWN INDICATION
     Route: 065
  3. FENTANYL-100 [Suspect]
     Route: 062
     Dates: start: 20110901, end: 20111001
  4. JOLIVETTE [Suspect]
     Indication: PRODUCT USED FOR UNKNOWN INDICATION
     Route: 048
  5. FENTANYL-100 [Suspect]
     Route: 062
     Dates: start: 20111001, end: 20120101
  6. FENTANYL-100 [Suspect]
     Indication: ARTHRALGIA
     Route: 062
     Dates: start: 20120101, end: 20120217
  7. FENTANYL-100 [Suspect]
     Route: 062
     Dates: start: 20120217

REACTIONS (5)
  - NIGHT SWEATS [None]
  - PRODUCT QUALITY ISSUE [None]
  - PRODUCT ADHESION ISSUE [None]
  - WRONG TECHNIQUE IN DRUG USAGE PROCESS [None]
  - APPLICATION SITE ERYTHEMA [None]
